FAERS Safety Report 18632528 (Version 1)
Quarter: 2020Q4

REPORT INFORMATION
  Report Type: Spontaneous
  Country: GB (occurrence: GB)
  Receive Date: 20201218
  Receipt Date: 20201218
  Transmission Date: 20210114
  Serious: Yes (Death)
  Sender: FDA-Public Use
  Company Number: GB-TEVA-2020-GB-1858950

PATIENT
  Age: 68 Year
  Sex: Male
  Weight: 82 kg

DRUGS (19)
  1. NEOLAB COTRIMOXAZOLE [Concomitant]
  2. MYCOPHENOLATE MOFETIL. [Concomitant]
     Active Substance: MYCOPHENOLATE MOFETIL
  3. MELPHALAN. [Concomitant]
     Active Substance: MELPHALAN
  4. POSACONAZOLE [Concomitant]
     Active Substance: POSACONAZOLE
  5. LEVOFLOXACIN. [Concomitant]
     Active Substance: LEVOFLOXACIN
  6. MEROPENEM TRIHYDRATE [Concomitant]
     Active Substance: MEROPENEM
  7. METFORMIN [Concomitant]
     Active Substance: METFORMIN HYDROCHLORIDE
  8. CIPROFLOXACIN. [Concomitant]
     Active Substance: CIPROFLOXACIN
  9. FLUDARABINE [Suspect]
     Active Substance: FLUDARABINE PHOSPHATE
     Dosage: IN TOTAL OVER 5 DAYS.
     Route: 042
     Dates: end: 20201026
  10. ALEMTUZUMAB [Concomitant]
     Active Substance: ALEMTUZUMAB
  11. CICLOSPORIN A [Concomitant]
     Active Substance: CYCLOSPORINE
  12. PREDNISOLONE. [Concomitant]
     Active Substance: PREDNISOLONE
  13. GLICLAZIDE [Concomitant]
     Active Substance: GLICLAZIDE
  14. FLUDARABINE [Suspect]
     Active Substance: FLUDARABINE PHOSPHATE
     Dosage: IN TOTAL OVER 5 DAYS. 150MG/M2
     Route: 042
     Dates: start: 20200909, end: 20200909
  15. ACICLOVIR [Concomitant]
     Active Substance: ACYCLOVIR
  16. ONDANSETRON HYDROCHLORIDE. [Concomitant]
     Active Substance: ONDANSETRON HYDROCHLORIDE
  17. AMILORIDE HYDROCHLORIDE. [Concomitant]
     Active Substance: AMILORIDE HYDROCHLORIDE
  18. RAMIPRIL. [Concomitant]
     Active Substance: RAMIPRIL
  19. OMEPRAZOLE. [Concomitant]
     Active Substance: OMEPRAZOLE

REACTIONS (3)
  - Confusional state [Fatal]
  - Neurological decompensation [Fatal]
  - Toxic leukoencephalopathy [Fatal]

NARRATIVE: CASE EVENT DATE: 202010
